FAERS Safety Report 8068767-1 (Version None)
Quarter: 2012Q1

REPORT INFORMATION
  Report Type: 
  Country: None (occurrence: None)
  Receive Date: 20120124
  Receipt Date: 20111215
  Transmission Date: 20120608
  Serious: No
  Sender: FDA-Public Use
  Company Number: US-AMGEN-USASP2011057388

PATIENT
  Age: 74 Year
  Sex: Female

DRUGS (8)
  1. PROLIA [Suspect]
     Indication: OSTEOPOROSIS POSTMENOPAUSAL
     Dosage: 60 MG, Q6MO
     Dates: start: 20110907
  2. PROPAFENONE HCL [Concomitant]
  3. HUMIRA [Concomitant]
  4. PLAQUENIL [Concomitant]
  5. COUMADIN [Concomitant]
  6. HUMIRA [Concomitant]
     Dosage: UNK UNK, QD
  7. LIPITOR [Concomitant]
  8. LOTREL [Concomitant]

REACTIONS (2)
  - RASH ERYTHEMATOUS [None]
  - RASH PRURITIC [None]
